FAERS Safety Report 8458855-X (Version None)
Quarter: 2012Q2

REPORT INFORMATION
  Report Type: 
  Country: None (occurrence: None)
  Receive Date: 20120622
  Receipt Date: 20120612
  Transmission Date: 20120825
  Serious: Yes (Hospitalization, Other)
  Sender: FDA-Public Use
  Company Number: FI-ELI_LILLY_AND_COMPANY-FI201206003699

PATIENT
  Sex: Male

DRUGS (1)
  1. OLANZAPINE [Suspect]
     Dosage: UNK, UNK
     Route: 030

REACTIONS (4)
  - HOSPITALISATION [None]
  - FEELING ABNORMAL [None]
  - DYSARTHRIA [None]
  - SEDATION [None]
